FAERS Safety Report 4574709-3 (Version None)
Quarter: 2005Q1

REPORT INFORMATION
  Report Type: 
  Country: None (occurrence: None)
  Receive Date: 20050208
  Receipt Date: 20040707
  Transmission Date: 20050727
  Serious: No
  Sender: FDA-Public Use
  Company Number: US-GLAXOSMITHKLINE-A0517244A

PATIENT
  Sex: Female

DRUGS (3)
  1. PAXIL [Suspect]
     Dosage: 20MG PER DAY
     Route: 048
     Dates: start: 20040703
  2. PREDNISONE [Concomitant]
  3. WATER PILL [Concomitant]
     Route: 048

REACTIONS (3)
  - FEELING JITTERY [None]
  - NAUSEA [None]
  - SOMNOLENCE [None]
